FAERS Safety Report 4452435-9 (Version None)
Quarter: 2004Q3

REPORT INFORMATION
  Report Type: 
  Country: None (occurrence: None)
  Receive Date: 20040917
  Receipt Date: 20040907
  Transmission Date: 20050211
  Serious: Yes (Other)
  Sender: FDA-Public Use
  Company Number: PHEH2004US09701

PATIENT
  Age: 78 Year
  Sex: Male

DRUGS (15)
  1. AREDIA [Suspect]
     Indication: BONE DENSITY DECREASED
     Dosage: UNK, UNK
     Dates: start: 19990501
  2. WARFARIN SODIUM [Concomitant]
  3. AVODART [Concomitant]
     Indication: HYPERTENSION
     Dosage: .5 MG, UNK
  4. GM-CSF [Concomitant]
  5. INTRON A [Concomitant]
  6. CALCITRIOL [Concomitant]
     Dosage: 3.5 UNK, UNK
  7. PREVACID [Concomitant]
     Dosage: 30 MG, UNK
  8. VASOTEC [Concomitant]
     Dosage: 10 UNK, UNK
  9. NEURONTIN [Concomitant]
     Dosage: 400/600
  10. LIPITOR [Concomitant]
     Indication: HYPERCHOLESTEROLAEMIA
     Dosage: 80 MG, UNK
     Dates: start: 19990101
  11. FUROSEMIDE [Concomitant]
     Indication: HYPERTENSION
  12. ALDACE [Concomitant]
     Indication: HYPERTENSION
  13. FOLTX [Concomitant]
     Dosage: 1/ QD
  14. XANAX [Concomitant]
     Indication: ANXIETY
     Dosage: .5 UNK, UNK
     Dates: start: 19990101
  15. ACCUTANE [Concomitant]
     Dosage: 10 UNK, BID

REACTIONS (5)
  - ENDODONTIC PROCEDURE [None]
  - IMPAIRED HEALING [None]
  - OSTEONECROSIS [None]
  - TOOTH ABSCESS [None]
  - TOOTH EXTRACTION [None]
